FAERS Safety Report 11642111 (Version 3)
Quarter: 2016Q3

REPORT INFORMATION
  Report Type: Report from Study
  Country: PT (occurrence: PT)
  Receive Date: 20151019
  Receipt Date: 20160916
  Transmission Date: 20161109
  Serious: Yes (Disabling, Other)
  Sender: FDA-Public Use
  Company Number: PT-GILEAD-2015-0176399

PATIENT
  Age: 41 Year
  Sex: Female

DRUGS (10)
  1. ESOMEPRAZOL                        /01479301/ [Concomitant]
     Active Substance: ESOMEPRAZOLE
     Route: 048
  2. TRAMADOL. [Concomitant]
     Active Substance: TRAMADOL
     Dosage: 5 MG, UNK
     Route: 048
  3. NAPROXENO                          /00256201/ [Concomitant]
     Active Substance: NAPROXEN
     Route: 048
  4. ALPRAZOLAM. [Concomitant]
     Active Substance: ALPRAZOLAM
     Indication: ANXIETY
     Dosage: 1 MG, QD
     Route: 048
  5. METADONA [Concomitant]
     Active Substance: METHADONE HYDROCHLORIDE
     Route: 048
  6. METADONA [Concomitant]
     Active Substance: METHADONE HYDROCHLORIDE
     Route: 048
  7. PARACETAMOL [Concomitant]
     Active Substance: ACETAMINOPHEN
  8. ALPRAZOLAM. [Concomitant]
     Active Substance: ALPRAZOLAM
     Dosage: UNK
     Route: 048
  9. CIPROFLOXACINA                     /00697201/ [Concomitant]
     Active Substance: CIPROFLOXACIN
     Route: 048
     Dates: end: 201508
  10. LEDIPASVIR/SOFOSBUVIR [Suspect]
     Active Substance: LEDIPASVIR\SOFOSBUVIR
     Indication: CHRONIC HEPATITIS C
     Dosage: 1 DF, QD
     Route: 048
     Dates: start: 20150723, end: 20151014

REACTIONS (7)
  - Parapsoriasis [Unknown]
  - Pruritus generalised [Unknown]
  - Dry mouth [Unknown]
  - Lip oedema [Unknown]
  - Rash generalised [Unknown]
  - Somnolence [Unknown]
  - Rash erythematous [Unknown]

NARRATIVE: CASE EVENT DATE: 20150723
